FAERS Safety Report 13716703 (Version 1)
Quarter: 2017Q3

REPORT INFORMATION
  Report Type: Spontaneous
  Country: US (occurrence: US)
  Receive Date: 20170705
  Receipt Date: 20170705
  Transmission Date: 20171127
  Serious: Yes (Other)
  Sender: FDA-Public Use
  Company Number: GXBR2017US002122

PATIENT
  Sex: Female

DRUGS (4)
  1. METHYLPREDNISOLONE TABLETS USP [Suspect]
     Active Substance: METHYLPREDNISOLONE
     Indication: AUTOIMMUNE DISORDER
     Dosage: TWO TABLETS, BID
     Route: 048
     Dates: start: 201705
  2. MONTELUKAST [Concomitant]
     Active Substance: MONTELUKAST SODIUM
     Indication: PRODUCT USED FOR UNKNOWN INDICATION
     Dosage: 10 MG, QD
     Route: 048
  3. ALLEGRA [Concomitant]
     Active Substance: FEXOFENADINE HYDROCHLORIDE
     Indication: SEASONAL ALLERGY
     Dosage: 150 MG, BID
     Route: 065
     Dates: start: 201705
  4. HYDROXYCHLOROQUINE [Concomitant]
     Active Substance: HYDROXYCHLOROQUINE
     Indication: PRODUCT USED FOR UNKNOWN INDICATION
     Dosage: 600 MG, QD
     Route: 048

REACTIONS (1)
  - Anaphylactic reaction [Unknown]
